FAERS Safety Report 4461705-X (Version None)
Quarter: 2004Q3

REPORT INFORMATION
  Report Type: 
  Country: None (occurrence: None)
  Receive Date: 20040923
  Receipt Date: 20040906
  Transmission Date: 20050211
  Serious: Yes (Hospitalization)
  Sender: FDA-Public Use
  Company Number: SHI_00001_2004

PATIENT
  Age: 5 Year
  Sex: Male
  Weight: 13 kg

DRUGS (1)
  1. KEIMAX [Suspect]
     Indication: URINARY TRACT INFECTION
     Dosage: 90 MG QDAY PO
     Route: 048
     Dates: start: 20040604, end: 20040616

REACTIONS (7)
  - ALANINE AMINOTRANSFERASE INCREASED [None]
  - ASPARTATE AMINOTRANSFERASE INCREASED [None]
  - DIARRHOEA [None]
  - HEPATOMEGALY [None]
  - LIVER DISORDER [None]
  - PYREXIA [None]
  - RED BLOOD CELL SEDIMENTATION RATE INCREASED [None]
